FAERS Safety Report 13195286 (Version 1)
Quarter: 2017Q1

REPORT INFORMATION
  Report Type: Spontaneous
  Country: US (occurrence: US)
  Receive Date: 20170207
  Receipt Date: 20170207
  Transmission Date: 20170428
  Serious: Yes (Life-Threatening, Hospitalization)
  Sender: FDA-Public Use
  Company Number: None

PATIENT
  Age: 67 Year
  Sex: Male
  Weight: 77.18 kg

DRUGS (7)
  1. CARDIZEM [Suspect]
     Active Substance: DILTIAZEM HYDROCHLORIDE
     Indication: BLOOD PRESSURE INCREASED
     Dosage: 30 PILLS ONCE DAILY MOUTH
     Route: 048
     Dates: start: 20160607, end: 20161210
  2. EX LAX [Concomitant]
  3. CARDIZEM [Suspect]
     Active Substance: DILTIAZEM HYDROCHLORIDE
     Indication: HEART RATE INCREASED
     Dosage: 30 PILLS ONCE DAILY MOUTH
     Route: 048
     Dates: start: 20160607, end: 20161210
  4. FAMOTIDINE. [Concomitant]
     Active Substance: FAMOTIDINE
  5. LOPRESSOR [Suspect]
     Active Substance: METOPROLOL TARTRATE
  6. NORVASC [Concomitant]
     Active Substance: AMLODIPINE BESYLATE
  7. GE. PROPAFENONE OR RYTHMOL [Concomitant]

REACTIONS (5)
  - Palpitations [None]
  - Atrial fibrillation [None]
  - Chest pain [None]
  - Peripheral swelling [None]
  - Cardiac disorder [None]

NARRATIVE: CASE EVENT DATE: 20160607
